FAERS Safety Report 12238431 (Version 1)
Quarter: 2016Q2

REPORT INFORMATION
  Report Type: Spontaneous
  Country: FR (occurrence: FR)
  Receive Date: 20160405
  Receipt Date: 20160405
  Transmission Date: 20160815
  Serious: Yes (Life-Threatening)
  Sender: FDA-Public Use
  Company Number: FR-SA-2016SA048876

PATIENT
  Age: 88 Year
  Sex: Female

DRUGS (7)
  1. PLAVIX [Suspect]
     Active Substance: CLOPIDOGREL BISULFATE
     Indication: MYOCARDIAL ISCHAEMIA
     Dosage: 75 MG
     Route: 048
     Dates: end: 20141120
  2. TRINITRINE [Concomitant]
     Active Substance: NITROGLYCERIN
  3. AMLODIPINE [Concomitant]
     Active Substance: AMLODIPINE BESYLATE
  4. VALDOXAN [Concomitant]
     Active Substance: AGOMELATINE
     Dosage: 25 MG
  5. TEMESTA [Concomitant]
     Active Substance: LORAZEPAM
     Dosage: SCORED TABLET?2.5 MG
  6. SERESTA [Concomitant]
     Active Substance: OXAZEPAM
     Dosage: 10 MG, TABLET
  7. SPIRONOLACTONE. [Concomitant]
     Active Substance: SPIRONOLACTONE

REACTIONS (2)
  - Aphasia [Recovered/Resolved]
  - Subdural haematoma [Recovered/Resolved]

NARRATIVE: CASE EVENT DATE: 20141120
